FAERS Safety Report 17725785 (Version 3)
Quarter: 2020Q4

REPORT INFORMATION
  Report Type: Spontaneous
  Country: CR (occurrence: CR)
  Receive Date: 20200429
  Receipt Date: 20201030
  Transmission Date: 20210113
  Serious: Yes (Other)
  Sender: FDA-Public Use
  Company Number: CR-PFIZER INC-2020172716

PATIENT
  Age: 69 Year
  Sex: Female

DRUGS (2)
  1. LIPITOR [Suspect]
     Active Substance: ATORVASTATIN CALCIUM
     Dosage: 40 MG
     Route: 048
     Dates: start: 20200428
  2. LIPITOR [Suspect]
     Active Substance: ATORVASTATIN CALCIUM
     Dosage: 80 MG, DAILY
     Route: 048
     Dates: start: 20200203, end: 20200428

REACTIONS (8)
  - Epilepsy [Not Recovered/Not Resolved]
  - Cardiac disorder [Unknown]
  - Parkinson^s disease [Not Recovered/Not Resolved]
  - Dizziness [Unknown]
  - Coeliac disease [Unknown]
  - Balance disorder [Unknown]
  - Hypoaesthesia [Unknown]
  - Lethargy [Unknown]
